FAERS Safety Report 20384675 (Version 1)
Quarter: 2022Q1

REPORT INFORMATION
  Report Type: Spontaneous
  Country: US (occurrence: US)
  Receive Date: 20220127
  Receipt Date: 20220127
  Transmission Date: 20220423
  Serious: Yes (Hospitalization)
  Sender: FDA-Public Use
  Company Number: US-MEDEXUS PHARMA, INC.-2022MED00021

PATIENT
  Age: 79 Year
  Sex: Female

DRUGS (5)
  1. RASUVO [Suspect]
     Active Substance: METHOTREXATE SODIUM
     Indication: Rheumatoid arthritis
     Dosage: 17.5 MG, INJECTED IN THE UPPER THIGH, 1X/WEEK ON WEDNESDAYS
     Dates: end: 202108
  2. RASUVO [Suspect]
     Active Substance: METHOTREXATE SODIUM
     Dosage: 17.5 MG, INJECTED IN THE UPPER THIGH, 1X/WEEK ON WEDNESDAYS
     Dates: start: 2021, end: 202110
  3. RASUVO [Suspect]
     Active Substance: METHOTREXATE SODIUM
     Dosage: 17.5 MG, INJECTED IN THE UPPER THIGH, 1X/WEEK ON WEDNESDAYS
     Dates: start: 202110
  4. COVID BOOSTER SHOT (MFR: UNKNOWN) [Concomitant]
     Dosage: UNK
     Dates: start: 202108, end: 202108
  5. UNSPECIFIED INGREDIENT [Concomitant]
     Active Substance: UNSPECIFIED INGREDIENT

REACTIONS (5)
  - Cardiac failure congestive [Unknown]
  - Peripheral swelling [Not Recovered/Not Resolved]
  - Arthropathy [Not Recovered/Not Resolved]
  - Product dose omission issue [Not Recovered/Not Resolved]
  - Fluid retention [Unknown]

NARRATIVE: CASE EVENT DATE: 20210801
